FAERS Safety Report 8130960-7 (Version None)
Quarter: 2012Q1

REPORT INFORMATION
  Report Type: 
  Country: None (occurrence: None)
  Receive Date: 20120213
  Receipt Date: 20120209
  Transmission Date: 20120608
  Serious: No
  Sender: FDA-Public Use
  Company Number: US-PFIZER INC-2012037171

PATIENT
  Sex: Female
  Weight: 41.27 kg

DRUGS (1)
  1. ALPRAZOLAM [Suspect]
     Dosage: 0.25 MG, 4X/DAY
     Dates: start: 20120115, end: 20120208

REACTIONS (4)
  - HEADACHE [None]
  - DIZZINESS [None]
  - DRUG DISPENSING ERROR [None]
  - NAUSEA [None]
